FAERS Safety Report 8810045 (Version 2)
Quarter: 2012Q4

REPORT INFORMATION
  Report Type: 
  Country: AR (occurrence: AR)
  Receive Date: 20120926
  Receipt Date: 20121114
  Transmission Date: 20130627
  Serious: Yes (Other)
  Sender: FDA-Public Use
  Company Number: AR-GLAXOSMITHKLINE-A0994529A

PATIENT
  Age: 73 Year
  Sex: Male

DRUGS (1)
  1. SERETIDE [Suspect]
     Indication: ASTHMA
     Dosage: 1PUFF Unknown
     Route: 055
     Dates: start: 2007, end: 20120916

REACTIONS (2)
  - Asthmatic crisis [Recovered/Resolved]
  - Product quality issue [Unknown]
